FAERS Safety Report 24976828 (Version 1)
Quarter: 2025Q1

REPORT INFORMATION
  Report Type: Spontaneous
  Country: FR (occurrence: FR)
  Receive Date: 20250217
  Receipt Date: 20250217
  Transmission Date: 20250408
  Serious: Yes (Hospitalization, Other)
  Sender: RECKITT BENCKISER
  Company Number: None

PATIENT

DRUGS (1)
  1. BUPRENORPHINE HYDROCHLORIDE [Suspect]
     Active Substance: BUPRENORPHINE HYDROCHLORIDE
     Indication: Product used for unknown indication
     Route: 045

REACTIONS (4)
  - Behaviour disorder [Recovered/Resolved]
  - Delusion [Recovered/Resolved]
  - Drug use disorder [Recovering/Resolving]
  - Intentional product use issue [Unknown]

NARRATIVE: CASE EVENT DATE: 20240101
